FAERS Safety Report 23549729 (Version 2)
Quarter: 2024Q1

REPORT INFORMATION
  Report Type: Spontaneous
  Country: FR (occurrence: FR)
  Receive Date: 20240221
  Receipt Date: 20240312
  Transmission Date: 20240409
  Serious: Yes (Hospitalization)
  Sender: FDA-Public Use
  Company Number: None

PATIENT
  Age: 73 Year
  Sex: Female
  Weight: 61 kg

DRUGS (14)
  1. ACETAMINOPHEN [Suspect]
     Active Substance: ACETAMINOPHEN
     Indication: Pain
     Dosage: ROUTE: INTRAVENOUS
     Dates: start: 20240115
  2. ONDANSETRON [Suspect]
     Active Substance: ONDANSETRON
     Indication: Nausea
     Dosage: ROUTE: INTRAVENOUS
     Dates: start: 20240115
  3. DIETARY SUPPLEMENT [Suspect]
     Active Substance: DIETARY SUPPLEMENT
     Indication: Nutritional supplementation
     Dosage: ROUTE: INTRAVENOUS
     Dates: start: 20240118
  4. METOCLOPRAMIDE [Suspect]
     Active Substance: METOCLOPRAMIDE
     Indication: Nausea
     Dosage: ROUTE: INTRAVENOUS (NOT OTHERWISE SPECIFIED)
     Dates: start: 20240127
  5. MIDAZOLAM [Suspect]
     Active Substance: MIDAZOLAM
     Indication: Anxiety
     Dosage: ROUTE: INTRAVENOUS (NOT OTHERWISE SPECIFIED)
     Dates: start: 20240127
  6. CERNEVIT [Suspect]
     Active Substance: VITAMINS
     Indication: Nutritional supplementation
     Dosage: ROUTE: INTRAVENOUS (NOT OTHERWISE SPECIFIED)
     Dates: start: 20240118
  7. SODIUM CHLORIDE [Suspect]
     Active Substance: SODIUM CHLORIDE
     Indication: Fluid replacement
     Dosage: ROUTE: PARENTERAL
     Route: 051
     Dates: start: 20240118
  8. ESOMEPRAZOLE MAGNESIUM [Suspect]
     Active Substance: ESOMEPRAZOLE\ESOMEPRAZOLE MAGNESIUM\ESOMEPRAZOLE MAGNESIUM DIHYDRATE
     Indication: Prophylaxis against gastrointestinal ulcer
     Dosage: ROUTE: INTRAVENOUS (NOT OTHERWISE SPECIFIED)
     Dates: start: 20240122
  9. DIETARY SUPPLEMENT [Suspect]
     Active Substance: DIETARY SUPPLEMENT
     Indication: Nutritional supplementation
     Dates: start: 20240118
  10. OCTREOTIDE ACETATE [Suspect]
     Active Substance: OCTREOTIDE ACETATE
     Indication: Intestinal obstruction
     Dosage: ROUTE: INTRAVENOUS (NOT OTHERWISE SPECIFIED)
     Dates: start: 20240126
  11. OLIMEL E [Suspect]
     Active Substance: AMINO ACIDS\DEXTROSE\ELECTROLYTES NOS\SOYBEAN OIL
     Indication: Parenteral nutrition
     Dosage: ROUTE: PARENTERAL
     Route: 051
     Dates: start: 20240118, end: 20240131
  12. HYDROCHLOROTHIAZIDE [Suspect]
     Active Substance: HYDROCHLOROTHIAZIDE
     Indication: Hypertension
     Dosage: ROUTE: ORAL?DOSE: 12.5 MG
  13. TELMISARTAN [Suspect]
     Active Substance: TELMISARTAN
     Indication: Hypertension
     Dosage: ROUTE: ORAL?DOSE: 80 MG
  14. SIMVASTATIN [Suspect]
     Active Substance: SIMVASTATIN
     Indication: Dyslipidaemia
     Dosage: ROUTE: ORAL?DOSE: 20 MG

REACTIONS (1)
  - Thrombocytopenia [Recovering/Resolving]

NARRATIVE: CASE EVENT DATE: 20240129
